FAERS Safety Report 8774108 (Version 1)
Quarter: 2012Q4

REPORT INFORMATION
  Report Type: 
  Country: AR (occurrence: AR)
  Receive Date: 20120908
  Receipt Date: 20120908
  Transmission Date: 20130627
  Serious: Yes (Other)
  Sender: FDA-Public Use
  Company Number: AR-AMGEN-ARGSP2012050031

PATIENT
  Age: 36 Year
  Sex: Female

DRUGS (5)
  1. ENBREL [Suspect]
     Indication: JUVENILE ARTHRITIS
     Dosage: 50 mg, weekly
     Dates: start: 2008
  2. RIVOTRIL [Concomitant]
     Indication: PANIC DISORDER
     Dosage: 2 mg, 1x/day
  3. VITAMIN D /00107901/ [Concomitant]
     Dosage: UNK
  4. AZACORTID [Concomitant]
     Dosage: 6 mg, 1x/day
  5. NAPROXEN [Concomitant]
     Dosage: 500 mg, 1x/day

REACTIONS (1)
  - Urinary tract infection [Unknown]
